FAERS Safety Report 7382539-2 (Version None)
Quarter: 2011Q1

REPORT INFORMATION
  Report Type: 
  Country: None (occurrence: None)
  Receive Date: 20110329
  Receipt Date: 20110322
  Transmission Date: 20110831
  Serious: Yes (Other)
  Sender: FDA-Public Use
  Company Number: US-BRISTOL-MYERS SQUIBB COMPANY-15625650

PATIENT
  Age: 65 Year
  Sex: Male
  Weight: 110 kg

DRUGS (2)
  1. GLUCOPHAGE [Suspect]
     Indication: DIABETES MELLITUS
     Dosage: TABLET. 10-12YEARS AGO FOR 6 MONTHS
     Route: 048
  2. LIPITOR [Suspect]
     Indication: CEREBROVASCULAR ACCIDENT
     Dosage: FILM COATED TABLET
     Route: 048
     Dates: start: 20010301

REACTIONS (3)
  - VISUAL IMPAIRMENT [None]
  - WEIGHT DECREASED [None]
  - DIARRHOEA [None]
